FAERS Safety Report 12141457 (Version 6)
Quarter: 2016Q3

REPORT INFORMATION
  Report Type: Spontaneous
  Country: JP (occurrence: JP)
  Receive Date: 20160303
  Receipt Date: 20160816
  Transmission Date: 20161109
  Serious: Yes (Hospitalization, Other)
  Sender: FDA-Public Use
  Company Number: JP-009507513-1602JPN012554

PATIENT
  Age: 60 Year
  Sex: Male
  Weight: 67 kg

DRUGS (13)
  1. SOVALDI [Suspect]
     Active Substance: SOFOSBUVIR
     Indication: HEPATITIS C
     Dosage: 400 MG, QD
     Route: 048
     Dates: start: 20160115
  2. ROZEREM [Concomitant]
     Active Substance: RAMELTEON
     Dosage: 8 MG, QD, DIVIDED DOSE FREQUENCY UNKNOWN
     Route: 048
  3. SPIRONOLACTONE. [Concomitant]
     Active Substance: SPIRONOLACTONE
     Dosage: 25 MG, QD
     Route: 048
  4. OLMETEC [Concomitant]
     Active Substance: OLMESARTAN MEDOXOMIL
     Dosage: 20 MG, QD
     Route: 048
  5. REBETOL [Suspect]
     Active Substance: RIBAVIRIN
     Indication: HEPATITIS C
     Dosage: 400 MG TWICE A DAY
     Route: 048
     Dates: start: 20160115, end: 2016
  6. REBETOL [Suspect]
     Active Substance: RIBAVIRIN
     Dosage: 400 MG, QD
     Route: 048
     Dates: start: 20160227, end: 20160310
  7. LYRICA [Concomitant]
     Active Substance: PREGABALIN
     Dosage: 75 MG, QD
     Route: 048
  8. NOVORAPID [Concomitant]
     Active Substance: INSULIN ASPART
     Dosage: DAILY DOSAGE UNKNOWN
     Route: 058
  9. AMLODIN OD [Concomitant]
     Active Substance: AMLODIPINE BESYLATE
     Dosage: 1 MG, QD
     Route: 048
  10. ATARAX [Concomitant]
     Active Substance: HYDROXYZINE\HYDROXYZINE HYDROCHLORIDE
     Dosage: 25 MG PER DAY, DIVIDED DOSE FREQUENCY UNKNOWN
     Route: 048
  11. NEXIUM [Concomitant]
     Active Substance: ESOMEPRAZOLE MAGNESIUM
     Dosage: 20 MG, QD
     Route: 048
  12. LASIX [Concomitant]
     Active Substance: FUROSEMIDE
     Dosage: 20 MG, QD
     Route: 048
  13. EQUA [Concomitant]
     Active Substance: VILDAGLIPTIN
     Dosage: 50 MG, BID
     Route: 048

REACTIONS (2)
  - Cerebral infarction [Recovered/Resolved with Sequelae]
  - Anaemia [Recovered/Resolved]

NARRATIVE: CASE EVENT DATE: 20160202
